FAERS Safety Report 8011239-0 (Version None)
Quarter: 2011Q4

REPORT INFORMATION
  Report Type: 
  Country: None (occurrence: None)
  Receive Date: 20111227
  Receipt Date: 20111227
  Transmission Date: 20120403
  Serious: No
  Sender: FDA-Public Use
  Company Number: None

PATIENT
  Sex: Female
  Weight: 54.431 kg

DRUGS (1)
  1. LEVOFLOXACIN [Suspect]
     Indication: GASTROINTESTINAL INFECTION
     Dosage: ONE TABLET
     Route: 048
     Dates: start: 20110718, end: 20110728

REACTIONS (2)
  - BURNING SENSATION [None]
  - MUSCULAR WEAKNESS [None]
